FAERS Safety Report 25677565 (Version 1)
Quarter: 2025Q3

REPORT INFORMATION
  Report Type: Report from Study
  Country: CA (occurrence: CA)
  Receive Date: 20250813
  Receipt Date: 20250813
  Transmission Date: 20251021
  Serious: Yes (Other)
  Sender: TAKEDA
  Company Number: CA-TAKEDA-2017TUS027348

PATIENT
  Age: 78 Year
  Sex: Female

DRUGS (28)
  1. VEDOLIZUMAB [Suspect]
     Active Substance: VEDOLIZUMAB
     Indication: Crohn^s disease
  2. VEDOLIZUMAB [Suspect]
     Active Substance: VEDOLIZUMAB
     Dosage: 300 MILLIGRAM, Q6WEEKS
     Dates: start: 20190108
  3. VEDOLIZUMAB [Suspect]
     Active Substance: VEDOLIZUMAB
     Dosage: 300 MILLIGRAM, Q4WEEKS
     Dates: start: 20191023
  4. PANTOPRAZOLE SODIUM [Suspect]
     Active Substance: PANTOPRAZOLE SODIUM
     Indication: Product used for unknown indication
     Dosage: 40 MILLIGRAM, QD
  5. IRON [Concomitant]
     Active Substance: IRON
  6. CALCIUM [Concomitant]
     Active Substance: CALCIUM
  7. ATIVAN [Concomitant]
     Active Substance: LORAZEPAM
  8. CHOLECALCIFEROL [Concomitant]
     Active Substance: CHOLECALCIFEROL
  9. MOTILIUM [Concomitant]
     Active Substance: DOMPERIDONE
  10. PLAVIX [Concomitant]
     Active Substance: CLOPIDOGREL BISULFATE
  11. PANTOPRAZOLE [Concomitant]
     Active Substance: PANTOPRAZOLE
  12. TELMISARTAN [Concomitant]
     Active Substance: TELMISARTAN
  13. IMOVANE [Concomitant]
     Active Substance: ZOPICLONE
  14. SYNTHROID [Concomitant]
     Active Substance: LEVOTHYROXINE SODIUM
  15. PREDNISONE [Concomitant]
     Active Substance: PREDNISONE
  16. SOLU-MEDROL [Concomitant]
     Active Substance: METHYLPREDNISOLONE SODIUM SUCCINATE
  17. CHLORTHALIDONE [Concomitant]
     Active Substance: CHLORTHALIDONE
  18. FERROUS SULFATE [Concomitant]
     Active Substance: FERROUS SULFATE
  19. DOCUSATE SODIUM [Concomitant]
     Active Substance: DOCUSATE SODIUM
  20. Jamp senna s [Concomitant]
  21. METHYLDOPA [Concomitant]
     Active Substance: METHYLDOPA
  22. Pro cal [Concomitant]
  23. RIBOCICLIB [Concomitant]
     Active Substance: RIBOCICLIB
  24. LETROZOLE [Concomitant]
     Active Substance: LETROZOLE
  25. ZOLEDRONIC ACID [Concomitant]
     Active Substance: ZOLEDRONIC ACID
     Dosage: 4 MILLIGRAM, MONTHLY
     Dates: start: 20241029
  26. Riva Clopidogrel [Concomitant]
  27. Riva-zopiclone [Concomitant]
  28. DOMPERIDONE [Concomitant]
     Active Substance: DOMPERIDONE

REACTIONS (4)
  - Pneumonia [Unknown]
  - Pleural effusion [Not Recovered/Not Resolved]
  - Bronchitis [Unknown]
  - Influenza [Unknown]

NARRATIVE: CASE EVENT DATE: 20181114
